FAERS Safety Report 22312919 (Version 1)
Quarter: 2023Q2

REPORT INFORMATION
  Report Type: Spontaneous
  Country: AU (occurrence: AU)
  Receive Date: 20230512
  Receipt Date: 20230512
  Transmission Date: 20230722
  Serious: Yes (Other)
  Sender: FDA-Public Use
  Company Number: AU-SUN PHARMACEUTICAL INDUSTRIES LTD-2023RR-387934

PATIENT
  Age: 74 Year
  Sex: Female

DRUGS (2)
  1. GEMCITABINE [Suspect]
     Active Substance: GEMCITABINE
     Indication: Metastatic squamous cell carcinoma
     Dosage: UNK
     Route: 065
  2. CARBOPLATIN [Suspect]
     Active Substance: CARBOPLATIN
     Indication: Metastatic squamous cell carcinoma
     Dosage: UNK
     Route: 065

REACTIONS (3)
  - Muscle necrosis [Recovering/Resolving]
  - Focal myositis [Recovering/Resolving]
  - Oedema [Recovering/Resolving]
